FAERS Safety Report 17208201 (Version 1)
Quarter: 2019Q4

REPORT INFORMATION
  Report Type: Spontaneous
  Country: US (occurrence: US)
  Receive Date: 20191227
  Receipt Date: 20191227
  Transmission Date: 20200122
  Serious: No
  Sender: FDA-Public Use
  Company Number: US-UCBSA-2018015755

PATIENT
  Age: 46 Year
  Sex: Female

DRUGS (22)
  1. GABAPENTIN. [Concomitant]
     Active Substance: GABAPENTIN
     Indication: HEADACHE
     Dosage: UNKNOWN DOSE
  2. OXCARBAZEPINA [Concomitant]
     Active Substance: OXCARBAZEPINE
     Indication: HEADACHE
     Dosage: UNKNOWN DOSE
  3. LACOSAMIDE. [Suspect]
     Active Substance: LACOSAMIDE
     Indication: OFF LABEL USE
     Dosage: TITRATING TO A DOSE OF 200 MG TWICE DAILY
  4. DIVALPROEX SODIUM. [Concomitant]
     Active Substance: DIVALPROEX SODIUM
     Indication: HEADACHE
     Dosage: UNKNOWN DOSE
  5. INDOMETHACIN. [Concomitant]
     Active Substance: INDOMETHACIN
     Indication: HEADACHE
     Dosage: UNKNOWN DOSE
  6. LACOSAMIDE. [Suspect]
     Active Substance: LACOSAMIDE
     Indication: SUNCT SYNDROME
     Dosage: UNKNOWN DOSE
  7. BACLOFEN. [Concomitant]
     Active Substance: BACLOFEN
     Indication: HEADACHE
     Dosage: UNKNOWN DOSE
  8. CARBAMAZEPINE. [Concomitant]
     Active Substance: CARBAMAZEPINE
     Indication: HEADACHE
     Dosage: UNKNOWN DOSE
  9. VERAPAMIL [Concomitant]
     Active Substance: VERAPAMIL HYDROCHLORIDE
     Indication: HEADACHE
     Dosage: UNKNOWN DOSE
  10. ZONISAMIDE. [Concomitant]
     Active Substance: ZONISAMIDE
     Indication: HEADACHE
     Dosage: UNKNOWN DOSE
  11. AMITRIPTYLINE [Concomitant]
     Active Substance: AMITRIPTYLINE
     Indication: HEADACHE
     Dosage: UNKNOWN DOSE
  12. MEXILETINE [Concomitant]
     Active Substance: MEXILETINE
     Indication: HEADACHE
     Dosage: UNKNOWN DOSE
  13. NORTRIPTYLINE [Concomitant]
     Active Substance: NORTRIPTYLINE
     Indication: HEADACHE
     Dosage: UNKNOWN DOSE
  14. OLANZAPINE. [Concomitant]
     Active Substance: OLANZAPINE
     Indication: HEADACHE
     Dosage: UNKNOWN DOSE
  15. CLOMIPHENE CITRATE. [Concomitant]
     Active Substance: CLOMIPHENE CITRATE
     Indication: HEADACHE
     Dosage: UNKNOWN DOSE
  16. DICLOFENAC [Concomitant]
     Active Substance: DICLOFENAC
     Indication: HEADACHE
     Dosage: UNKNOWN DOSE
  17. PREGABALIN. [Concomitant]
     Active Substance: PREGABALIN
     Indication: HEADACHE
     Dosage: UNKNOWN DOSE
  18. LAMOTRIGINE. [Concomitant]
     Active Substance: LAMOTRIGINE
     Indication: HEADACHE
     Dosage: UNKNOWN DOSE
  19. TOPIRAMATE. [Concomitant]
     Active Substance: TOPIRAMATE
     Indication: HEADACHE
  20. AMANTADINE. [Concomitant]
     Active Substance: AMANTADINE HYDROCHLORIDE
     Indication: HEADACHE
     Dosage: UNKNOWN DOSE
  21. LITHIUM. [Concomitant]
     Active Substance: LITHIUM
     Indication: HEADACHE
     Dosage: UNKNOWN DOSE
  22. PHENYTOIN. [Concomitant]
     Active Substance: PHENYTOIN
     Indication: HEADACHE
     Dosage: UNKNOWN DOSE

REACTIONS (1)
  - No adverse event [Unknown]
